FAERS Safety Report 14627492 (Version 1)
Quarter: 2018Q1

REPORT INFORMATION
  Report Type: Spontaneous
  Country: GB (occurrence: GB)
  Receive Date: 20180312
  Receipt Date: 20180312
  Transmission Date: 20180509
  Serious: Yes (Other)
  Sender: FDA-Public Use
  Company Number: GB-PFIZER INC-2018097069

PATIENT
  Age: 74 Year
  Sex: Female
  Weight: 45 kg

DRUGS (7)
  1. AQUEOUS CREAM [Concomitant]
     Dosage: USE AS SOAP SUBSTITUTE
     Dates: start: 20170714
  2. LOSARTAN. [Concomitant]
     Active Substance: LOSARTAN
     Dosage: 2 DF, 1X/DAY
     Dates: start: 20170714
  3. HYLO TEAR [Concomitant]
     Dosage: USE AS DIRECTED
     Dates: start: 20170714
  4. DOXAZOSIN [Concomitant]
     Active Substance: DOXAZOSIN\DOXAZOSIN MESYLATE
     Dosage: 1 DF, 1X/DAY
     Dates: start: 20180123
  5. AMLODIPINE BESILATE [Suspect]
     Active Substance: AMLODIPINE BESYLATE
     Dosage: UNK
     Dates: start: 20180207
  6. AMITRIPTYLINE HYDROCHLORIDE. [Concomitant]
     Active Substance: AMITRIPTYLINE HYDROCHLORIDE
     Indication: FLATULENCE
     Dosage: TAKE 1-2 AT NIGHT
     Dates: start: 20170714
  7. COLECALCIFEROL [Concomitant]
     Active Substance: CHOLECALCIFEROL
     Dosage: 1 DF, 1X/DAY
     Dates: start: 20170714

REACTIONS (2)
  - Periorbital oedema [Recovered/Resolved]
  - Peripheral swelling [Unknown]

NARRATIVE: CASE EVENT DATE: 20180207
